FAERS Safety Report 6709185-5 (Version None)
Quarter: 2010Q2

REPORT INFORMATION
  Report Type: 
  Country: None (occurrence: None)
  Receive Date: 20100423
  Receipt Date: 20091123
  Transmission Date: 20101027
  Serious: No
  Sender: FDA-Public Use
  Company Number: ALL1-2009-03823

PATIENT
  Age: 14 Year
  Sex: Female

DRUGS (1)
  1. VYVANSE [Suspect]
     Indication: ATTENTION DEFICIT/HYPERACTIVITY DISORDER
     Dosage: 40 MG, 1X/DAY:QD, ORAL
     Route: 048
     Dates: end: 20090101

REACTIONS (4)
  - HEADACHE [None]
  - HYPERSOMNIA [None]
  - OFF LABEL USE [None]
  - WEIGHT DECREASED [None]
